FAERS Safety Report 6506556-7 (Version None)
Quarter: 2009Q4

REPORT INFORMATION
  Report Type: 
  Country: None (occurrence: None)
  Receive Date: 20091221
  Receipt Date: 20091210
  Transmission Date: 20100525
  Serious: Yes (Other)
  Sender: FDA-Public Use
  Company Number: JP-JNJFOC-20091204120

PATIENT
  Age: 31 Year

DRUGS (5)
  1. PREZISTA [Suspect]
     Indication: HIV INFECTION
     Route: 048
  2. RITONAVIR [Suspect]
     Indication: HIV INFECTION
  3. ZIDOVUDINE [Suspect]
     Indication: HIV INFECTION
  4. LAMIVUDINE [Suspect]
     Indication: HIV INFECTION
  5. RALTEGRAVIR [Suspect]
     Indication: HIV INFECTION

REACTIONS (1)
  - ARTHRITIS [None]
